FAERS Safety Report 25026959 (Version 1)
Quarter: 2025Q1

REPORT INFORMATION
  Report Type: Spontaneous
  Country: US (occurrence: US)
  Receive Date: 20250301
  Receipt Date: 20250301
  Transmission Date: 20250408
  Serious: No
  Sender: SANOFI AVENTIS
  Company Number: US-SA-2025SA055131

PATIENT
  Age: 75 Year
  Sex: Female

DRUGS (4)
  1. DUPIXENT [Suspect]
     Active Substance: DUPILUMAB
     Indication: Dermatitis atopic
     Route: 058
     Dates: start: 20230719, end: 20250219
  2. LISINOPRIL [Concomitant]
     Active Substance: LISINOPRIL
  3. OXYBUTYNIN [Concomitant]
     Active Substance: OXYBUTYNIN
  4. HYDROXYZINE [Concomitant]
     Active Substance: HYDROXYZINE HYDROCHLORIDE

REACTIONS (2)
  - Pruritus [Unknown]
  - Rebound effect [Unknown]

NARRATIVE: CASE EVENT DATE: 20250219
